FAERS Safety Report 13551708 (Version 1)
Quarter: 2017Q2

REPORT INFORMATION
  Report Type: Spontaneous
  Country: US (occurrence: US)
  Receive Date: 20170516
  Receipt Date: 20170516
  Transmission Date: 20170830
  Serious: Yes (Other)
  Sender: FDA-Public Use
  Company Number: US-BAUSCH-BL-2017-013559

PATIENT
  Age: 60 Year
  Sex: Female

DRUGS (1)
  1. ADVANCED EYE RELIEF/EYE WASH [Suspect]
     Active Substance: WATER
     Indication: FOREIGN BODY IN EYE
     Dosage: ONCE
     Route: 047

REACTIONS (11)
  - Road traffic accident [Unknown]
  - Eye inflammation [Recovered/Resolved]
  - Blindness [Unknown]
  - Ocular hyperaemia [Recovered/Resolved]
  - Fatigue [Unknown]
  - Eye haemorrhage [Recovered/Resolved]
  - Procedural pain [Unknown]
  - Eye infection [Recovered/Resolved]
  - Back pain [Unknown]
  - Eye irritation [Recovered/Resolved]
  - Eye pain [Not Recovered/Not Resolved]

NARRATIVE: CASE EVENT DATE: 2000
